FAERS Safety Report 4904944-3 (Version None)
Quarter: 2006Q1

REPORT INFORMATION
  Report Type: 
  Country: None (occurrence: None)
  Receive Date: 20060208
  Receipt Date: 20051025
  Transmission Date: 20060701
  Serious: No
  Sender: FDA-Public Use
  Company Number: US-GLAXOSMITHKLINE-A0579581A

PATIENT
  Age: 48 Year
  Sex: Female

DRUGS (7)
  1. PAROXETINE HCL [Suspect]
     Indication: DEPRESSION
     Dosage: 60MG PER DAY
     Route: 048
  2. WELLBUTRIN [Suspect]
     Indication: DEPRESSION
     Dosage: 150MG PER DAY
     Route: 048
     Dates: start: 20051019
  3. VICODIN [Concomitant]
  4. BLOOD PRESSURE MED [Concomitant]
  5. VITAMIN B-12 [Concomitant]
  6. VITAMIN B COMPLEX CAP [Concomitant]
  7. OMEGA 3 [Concomitant]

REACTIONS (3)
  - ABDOMINAL PAIN UPPER [None]
  - HEADACHE [None]
  - LIBIDO DECREASED [None]
